FAERS Safety Report 10187084 (Version 2)
Quarter: 2014Q2

REPORT INFORMATION
  Report Type: Spontaneous
  Country: US (occurrence: US)
  Receive Date: 20140522
  Receipt Date: 20140625
  Transmission Date: 20141212
  Serious: No
  Sender: FDA-Public Use
  Company Number: US-009507513-1405USA009539

PATIENT
  Age: 27 Year
  Sex: Female
  Weight: 91.16 kg

DRUGS (2)
  1. JANUMET [Suspect]
     Indication: TYPE 2 DIABETES MELLITUS
     Dosage: 50/1000 MG, TWICE DAILY
     Route: 048
     Dates: start: 20140424, end: 20140428
  2. METFORMIN HYDROCHLORIDE [Concomitant]

REACTIONS (1)
  - Nausea [Recovered/Resolved]
